FAERS Safety Report 5742333-2 (Version None)
Quarter: 2008Q2

REPORT INFORMATION
  Report Type: 
  Country: None (occurrence: None)
  Receive Date: 20080514
  Receipt Date: 20080514
  Transmission Date: 20081010
  Serious: Yes (Hospitalization)
  Sender: FDA-Public Use
  Company Number: None

PATIENT
  Sex: Male

DRUGS (20)
  1. NEXAVAR [Suspect]
     Indication: MALIGNANT MELANOMA
     Dosage: 200 MG BID PO
     Route: 048
     Dates: start: 20080422, end: 20080506
  2. MELPHALAN (CHEMO) [Suspect]
     Dosage: ONCE IV
     Route: 042
     Dates: start: 20080429
  3. DIFLUCAN [Concomitant]
  4. SILVADENE [Concomitant]
  5. ANCEF [Concomitant]
  6. ZYDONE [Concomitant]
  7. LOVENOX [Concomitant]
  8. SENOKOT [Concomitant]
  9. LISINOPRIL [Concomitant]
  10. LOPRESSOR [Concomitant]
  11. DOXAZOSIN MESYLATE [Concomitant]
  12. LASIX [Concomitant]
  13. ATIVAN [Concomitant]
  14. CELEXA [Concomitant]
  15. PROCRIT [Concomitant]
  16. CARDURA [Concomitant]
  17. ZOFRAN [Concomitant]
  18. MILK OF MAGNESIA [Concomitant]
  19. TYLENOL [Concomitant]
  20. CIPRO [Concomitant]

REACTIONS (3)
  - CELLULITIS [None]
  - SKIN INFECTION [None]
  - WOUND SECRETION [None]
